FAERS Safety Report 8286487-5 (Version None)
Quarter: 2012Q2

REPORT INFORMATION
  Report Type: 
  Country: None (occurrence: None)
  Receive Date: 20120416
  Receipt Date: 20120413
  Transmission Date: 20120825
  Serious: Yes (Other)
  Sender: FDA-Public Use
  Company Number: US-PFIZER INC-2012013925

PATIENT
  Sex: Female
  Weight: 68 kg

DRUGS (4)
  1. PLAVIX [Concomitant]
     Dosage: 75 MG, DAILY
  2. CELEBREX [Suspect]
     Indication: ARTHRITIS
     Dosage: UNK
  3. CELEBREX [Suspect]
     Indication: ARTHROPATHY
     Dosage: 200 MG, DAILY
  4. ASPIRIN [Concomitant]
     Dosage: 81 MG, EVERY OTHER NIGHT

REACTIONS (1)
  - MACULAR DEGENERATION [None]
